FAERS Safety Report 25769122 (Version 1)
Quarter: 2025Q3

REPORT INFORMATION
  Report Type: Spontaneous
  Country: US (occurrence: US)
  Receive Date: 20250905
  Receipt Date: 20250905
  Transmission Date: 20251020
  Serious: Yes (Other)
  Sender: AMGEN
  Company Number: US-AMGEN-USASP2025172391

PATIENT
  Age: 76 Year
  Sex: Male

DRUGS (4)
  1. PREDNISONE [Suspect]
     Active Substance: PREDNISONE
     Indication: Scleromalacia
     Route: 048
  2. MITOMYCIN C [Concomitant]
     Active Substance: MITOMYCIN
  3. LIDOCAINE [Concomitant]
     Active Substance: LIDOCAINE
  4. EPINEPHRINE [Concomitant]
     Active Substance: EPINEPHRINE

REACTIONS (5)
  - Scleromalacia [Unknown]
  - Off label use [Unknown]
  - Antinuclear antibody positive [Unknown]
  - Antibody test positive [Unknown]
  - Treatment failure [Unknown]
